FAERS Safety Report 11158589 (Version 3)
Quarter: 2015Q3

REPORT INFORMATION
  Report Type: Spontaneous
  Country: HK (occurrence: HK)
  Receive Date: 20150603
  Receipt Date: 20150714
  Transmission Date: 20151125
  Serious: Yes (Hospitalization)
  Sender: FDA-Public Use
  Company Number: HK-ASTRAZENECA-2015SE52502

PATIENT
  Sex: Female

DRUGS (6)
  1. DPP4 [Concomitant]
     Route: 048
  2. SU [Concomitant]
  3. FORXIGA [Suspect]
     Active Substance: DAPAGLIFLOZIN
     Indication: TYPE 2 DIABETES MELLITUS
     Route: 048
     Dates: start: 201505
  4. METFORMIN [Concomitant]
     Active Substance: METFORMIN HYDROCHLORIDE
     Dosage: 500MG OM, 750MG NOON, 750MG
  5. TZD [Concomitant]
  6. DIAMICRON [Concomitant]
     Active Substance: GLICLAZIDE

REACTIONS (8)
  - Pyrexia [Recovered/Resolved]
  - Treatment noncompliance [Unknown]
  - Urinary tract infection [Unknown]
  - Fatigue [Unknown]
  - Diabetic ketoacidosis [Unknown]
  - Feeling abnormal [Unknown]
  - Dizziness [Unknown]
  - Hyponatraemia [Unknown]

NARRATIVE: CASE EVENT DATE: 201505
